FAERS Safety Report 7105988-6 (Version None)
Quarter: 2010Q4

REPORT INFORMATION
  Report Type: 
  Country: None (occurrence: None)
  Receive Date: 20101116
  Receipt Date: 20101115
  Transmission Date: 20110411
  Serious: Yes (Other)
  Sender: FDA-Public Use
  Company Number: US-BRISTOL-MYERS SQUIBB COMPANY-15385172

PATIENT
  Age: 58 Year
  Sex: Female

DRUGS (2)
  1. GLUCOPHAGE [Suspect]
  2. ASPIRIN [Concomitant]

REACTIONS (1)
  - BREAST CANCER [None]
